FAERS Safety Report 4524731-8 (Version None)
Quarter: 2004Q4

REPORT INFORMATION
  Report Type: 
  Country: None (occurrence: None)
  Receive Date: 20041213
  Receipt Date: 20041201
  Transmission Date: 20050328
  Serious: Yes (Other)
  Sender: FDA-Public Use
  Company Number: US-JNJFOC-20041200445

PATIENT
  Sex: Male
  Weight: 68.27 kg

DRUGS (3)
  1. REMICADE [Suspect]
     Indication: CROHN'S DISEASE
     Route: 042
  2. IMURAN [Concomitant]
  3. FOLIC ACID [Concomitant]

REACTIONS (1)
  - ARTERIOVENOUS MALFORMATION [None]
